FAERS Safety Report 23334588 (Version 1)
Quarter: 2023Q4

REPORT INFORMATION
  Report Type: Spontaneous
  Country: GB (occurrence: GB)
  Receive Date: 20231224
  Receipt Date: 20231224
  Transmission Date: 20240109
  Serious: Yes (Other)
  Sender: FDA-Public Use
  Company Number: GB-MHRA-ADR 28390697

PATIENT

DRUGS (1)
  1. DULOXETINE [Suspect]
     Active Substance: DULOXETINE
     Indication: Product used for unknown indication
     Dosage: 90 MILLIGRAM
     Route: 065

REACTIONS (6)
  - Suicidal ideation [Unknown]
  - Hypersomnia [Unknown]
  - Anxiety [Unknown]
  - Anger [Unknown]
  - Frustration tolerance decreased [Unknown]
  - Depression [Unknown]
